FAERS Safety Report 4581083-5 (Version None)
Quarter: 2005Q1

REPORT INFORMATION
  Report Type: 
  Country: None (occurrence: None)
  Receive Date: 20050214
  Receipt Date: 20040802
  Transmission Date: 20050727
  Serious: No
  Sender: FDA-Public Use
  Company Number: US-GLAXOSMITHKLINE-A0520660A

PATIENT
  Sex: Female

DRUGS (1)
  1. LAMICTAL [Suspect]
     Dosage: 25MG PER DAY
     Route: 048
     Dates: start: 20040701

REACTIONS (6)
  - ANTISOCIAL BEHAVIOUR [None]
  - CRYING [None]
  - DEPRESSION [None]
  - MENTAL DISORDER [None]
  - NAUSEA [None]
  - RASH [None]
